FAERS Safety Report 9632527 (Version 3)
Quarter: 2014Q1

REPORT INFORMATION
  Report Type: Spontaneous
  Country: US (occurrence: US)
  Receive Date: 20131018
  Receipt Date: 20140323
  Transmission Date: 20141002
  Serious: Yes (Death)
  Sender: FDA-Public Use
  Company Number: US-BRISTOL-MYERS SQUIBB COMPANY-19550763

PATIENT
  Age: 63 Year
  Sex: Male
  Weight: 128.6 kg

DRUGS (14)
  1. BYETTA [Suspect]
     Indication: TYPE 2 DIABETES MELLITUS
     Dates: start: 20100517, end: 2012
  2. JANUVIA [Suspect]
     Indication: TYPE 2 DIABETES MELLITUS
     Dates: start: 20100517, end: 201202
  3. DIOVAN [Concomitant]
     Dosage: TAB
     Route: 048
  4. GLUCOPHAGE TABS 1000 MG [Concomitant]
     Route: 048
  5. LORTAB [Concomitant]
     Indication: PAIN
     Dosage: 1DF:10MG-500MG TAB
     Route: 048
  6. TOPROL XL [Concomitant]
     Dosage: TAB
     Route: 048
  7. ACTOS [Concomitant]
     Dosage: TAB
     Route: 048
  8. ALDACTONE [Concomitant]
     Dosage: TAB
     Route: 048
  9. CLOTRIMAZOLE [Concomitant]
     Dosage: CREAM
     Route: 061
  10. POTASSIUM CHLORIDE [Concomitant]
     Dosage: TAB
     Route: 048
  11. PREDNISONE [Concomitant]
     Route: 048
  12. WELLBUTRIN XL [Concomitant]
     Dosage: TAB
     Route: 048
  13. ZOFRAN [Concomitant]
     Dosage: 1-2 TAB
     Route: 048
  14. LYRICA [Concomitant]
     Route: 048

REACTIONS (4)
  - Pancreatic carcinoma [Fatal]
  - Headache [Unknown]
  - Nausea [Unknown]
  - Weight increased [Unknown]
